FAERS Safety Report 5761153-6 (Version None)
Quarter: 2008Q2

REPORT INFORMATION
  Report Type: 
  Country: None (occurrence: None)
  Receive Date: 20080606
  Receipt Date: 20080527
  Transmission Date: 20081010
  Serious: Yes (Hospitalization)
  Sender: FDA-Public Use
  Company Number: B0359660A

PATIENT
  Age: 50 Year
  Sex: Female

DRUGS (8)
  1. SEROXAT [Suspect]
     Route: 065
     Dates: start: 19990507
  2. CHLORDIAZEPOXIDE [Concomitant]
     Dates: start: 20020508
  3. DIAZEPAM [Concomitant]
     Dates: start: 20030625
  4. LORAZEPAM [Concomitant]
     Dates: start: 20020727
  5. PROZAC [Concomitant]
     Dates: start: 19980319
  6. PROPRANOLOL [Concomitant]
  7. CITALOPRAM HYDROBROMIDE [Concomitant]
  8. ST JOHNS WORT [Concomitant]
     Dates: start: 20020601

REACTIONS (37)
  - AGITATION [None]
  - ANXIETY [None]
  - CONFUSIONAL STATE [None]
  - DEREALISATION [None]
  - DISTURBANCE IN ATTENTION [None]
  - DIZZINESS [None]
  - DRUG WITHDRAWAL SYNDROME [None]
  - DRY MOUTH [None]
  - ELECTRIC SHOCK [None]
  - EMOTIONAL DISORDER [None]
  - FATIGUE [None]
  - FEELING ABNORMAL [None]
  - HYPERACUSIS [None]
  - HYPERHIDROSIS [None]
  - HYPERVENTILATION [None]
  - HYPERVIGILANCE [None]
  - INFLUENZA [None]
  - INSOMNIA [None]
  - INTENTIONAL SELF-INJURY [None]
  - LETHARGY [None]
  - MEMORY IMPAIRMENT [None]
  - MORBID THOUGHTS [None]
  - MUSCLE RIGIDITY [None]
  - NIGHTMARE [None]
  - OVERDOSE [None]
  - PALPITATIONS [None]
  - PANIC ATTACK [None]
  - PANIC REACTION [None]
  - PARAESTHESIA [None]
  - PERSONALITY CHANGE [None]
  - RESPIRATORY RATE INCREASED [None]
  - SENSORY DISTURBANCE [None]
  - SUICIDAL BEHAVIOUR [None]
  - TINNITUS [None]
  - TREMOR [None]
  - VISION BLURRED [None]
  - VOMITING [None]
